FAERS Safety Report 15706782 (Version 18)
Quarter: 2019Q2

REPORT INFORMATION
  Report Type: Report from Study
  Country: US (occurrence: US)
  Receive Date: 20181210
  Receipt Date: 20190628
  Transmission Date: 20190711
  Serious: Yes (Hospitalization, Other)
  Sender: FDA-Public Use
  Company Number: US-ACTELION-A-NJ2018-182250

PATIENT
  Age: 74 Year
  Sex: Male
  Weight: 111.11 kg

DRUGS (7)
  1. ADEMPAS [Suspect]
     Active Substance: RIOCIGUAT
     Dosage: 1.5 MG, BID
     Route: 048
     Dates: start: 20190114
  2. WARFARIN [Concomitant]
     Active Substance: WARFARIN
  3. LASIX [Suspect]
     Active Substance: FUROSEMIDE
     Indication: PRODUCT USED FOR UNKNOWN INDICATION
     Route: 065
  4. ADEMPAS [Suspect]
     Active Substance: RIOCIGUAT
     Dosage: 1.5 MG, BID
     Route: 048
  5. ADEMPAS [Suspect]
     Active Substance: RIOCIGUAT
     Indication: PRODUCT USED FOR UNKNOWN INDICATION
     Dosage: 1.5 MG, TID
     Route: 048
  6. OPSUMIT [Suspect]
     Active Substance: MACITENTAN
     Indication: PULMONARY ARTERIAL HYPERTENSION
     Dosage: 10 MG, QD
     Route: 048
  7. ADEMPAS [Suspect]
     Active Substance: RIOCIGUAT
     Dosage: UNK
     Route: 048
     Dates: start: 20181117

REACTIONS (41)
  - Blood glucose decreased [Unknown]
  - Oliguria [Unknown]
  - Nausea [Unknown]
  - Dizziness [Unknown]
  - Pruritus generalised [Unknown]
  - Dyspnoea exertional [Unknown]
  - Atrial fibrillation [Unknown]
  - Blood pressure systolic decreased [Unknown]
  - Diarrhoea [Unknown]
  - Arthralgia [Unknown]
  - Gastrooesophageal reflux disease [Unknown]
  - Rash generalised [Unknown]
  - Pruritus [Unknown]
  - Fatigue [Unknown]
  - Dyspepsia [Unknown]
  - Heart rate increased [Unknown]
  - Abdominal pain [Unknown]
  - Blood glucose increased [Unknown]
  - Vision blurred [Unknown]
  - Oedema [Unknown]
  - Back pain [Unknown]
  - Peripheral swelling [Unknown]
  - Hypotension [Unknown]
  - Nephrolithiasis [Unknown]
  - Nasal dryness [Unknown]
  - Unevaluable event [Unknown]
  - Arthritis [Unknown]
  - Fluid retention [Unknown]
  - Renal colic [Unknown]
  - Dysuria [Unknown]
  - Pollakiuria [Unknown]
  - Sinus congestion [Unknown]
  - Dyspnoea [Unknown]
  - Condition aggravated [Unknown]
  - Blood pressure decreased [Unknown]
  - Headache [Unknown]
  - Pneumonia [Unknown]
  - Constipation [Unknown]
  - Urticaria [Unknown]
  - Decreased appetite [Unknown]
  - Oedema peripheral [Recovering/Resolving]

NARRATIVE: CASE EVENT DATE: 201811
